FAERS Safety Report 7437328-7 (Version None)
Quarter: 2011Q2

REPORT INFORMATION
  Report Type: 
  Country: None (occurrence: None)
  Receive Date: 20110426
  Receipt Date: 20110420
  Transmission Date: 20111010
  Serious: Yes (Hospitalization)
  Sender: FDA-Public Use
  Company Number: DE-TEVA-277560GER

PATIENT
  Age: 50 Year
  Sex: Female

DRUGS (3)
  1. ANTISTAX [Suspect]
  2. METOPROLOL 100 [Suspect]
  3. RENACOR [Suspect]

REACTIONS (1)
  - ANGIOEDEMA [None]
